FAERS Safety Report 7309133-3 (Version None)
Quarter: 2011Q1

REPORT INFORMATION
  Report Type: 
  Country: None (occurrence: None)
  Receive Date: 20110223
  Receipt Date: 20110210
  Transmission Date: 20110831
  Serious: Yes (Hospitalization)
  Sender: FDA-Public Use
  Company Number: PHHY2011IT10557

PATIENT
  Sex: Female

DRUGS (4)
  1. METOPROLOL HEXAL [Suspect]
     Indication: HYPERTENSION
     Dosage: 1 DF, UNK
     Route: 048
     Dates: start: 20050101, end: 20110131
  2. LORAZEPAM [Concomitant]
     Dosage: 1 DF, UNK
     Route: 048
  3. ASPIRIN [Concomitant]
     Dosage: 1 DF, UNK
     Route: 048
  4. CARVASIN [Concomitant]
     Dosage: 1 DF, UNK
     Route: 048

REACTIONS (2)
  - SUPRAVENTRICULAR TACHYCARDIA [None]
  - BLOOD PRESSURE DECREASED [None]
